FAERS Safety Report 10335095 (Version 1)
Quarter: 2014Q3

REPORT INFORMATION
  Report Type: Spontaneous
  Country: US (occurrence: US)
  Receive Date: 20140723
  Receipt Date: 20140723
  Transmission Date: 20150326
  Serious: No
  Sender: FDA-Public Use
  Company Number: US-ASTRAZENECA-2014SE51046

PATIENT
  Age: 82 Year
  Sex: Male
  Weight: 98.4 kg

DRUGS (3)
  1. UNKNWON MEDICATION [Concomitant]
     Indication: BLOOD CHOLESTEROL ABNORMAL
  2. SYMBICORT [Suspect]
     Active Substance: BUDESONIDE\FORMOTEROL FUMARATE DIHYDRATE
     Indication: EMPHYSEMA
     Dosage: 80 4.5MCG 2 PUFFS BID
     Route: 055
     Dates: start: 20140629
  3. UNKNOWN MEDICATION [Concomitant]
     Active Substance: UNSPECIFIED INGREDIENT
     Indication: BLOOD PRESSURE ABNORMAL

REACTIONS (3)
  - Dysphonia [Unknown]
  - Memory impairment [Unknown]
  - Oropharyngeal pain [Unknown]

NARRATIVE: CASE EVENT DATE: 201407
